FAERS Safety Report 4927798-8 (Version None)
Quarter: 2006Q1

REPORT INFORMATION
  Report Type: 
  Country: None (occurrence: None)
  Receive Date: 20060228
  Receipt Date: 20060103
  Transmission Date: 20060701
  Serious: Yes (Hospitalization)
  Sender: FDA-Public Use
  Company Number: BR-BRISTOL-MYERS SQUIBB COMPANY-13235528

PATIENT
  Age: 11 Year
  Sex: Male

DRUGS (5)
  1. BLINDED: ABATACEPT [Suspect]
     Indication: JUVENILE ARTHRITIS
     Route: 042
     Dates: start: 20051124
  2. PLACEBO [Suspect]
     Indication: JUVENILE ARTHRITIS
     Route: 042
     Dates: start: 20051124
  3. METHOTREXATE [Suspect]
     Route: 058
     Dates: start: 20021219
  4. NAPROXEN [Concomitant]
     Route: 048
     Dates: start: 20040729
  5. FOLIC ACID [Concomitant]
     Route: 042
     Dates: start: 20050630

REACTIONS (2)
  - ENCEPHALITIS [None]
  - VARICELLA [None]
